FAERS Safety Report 13944147 (Version 1)
Quarter: 2017Q3

REPORT INFORMATION
  Report Type: Report from Study
  Country: PL (occurrence: PL)
  Receive Date: 20170907
  Receipt Date: 20170907
  Transmission Date: 20171128
  Serious: Yes (Hospitalization)
  Sender: FDA-Public Use
  Company Number: PL-ROCHE-1986833

PATIENT
  Age: 79 Year
  Sex: Male
  Weight: 81 kg

DRUGS (6)
  1. COBIMETINIB. [Suspect]
     Active Substance: COBIMETINIB
     Indication: MALIGNANT MELANOMA
     Dosage: COBIMETINIB 60 MG TABLETS (THREE 20 MG TABLET) ORALLY OD FOR 21 CONSECUTIVE DAYS (DAYS 1 TO 21), FO
     Route: 048
     Dates: start: 20160531
  2. CALPEROS (POLAND) [Concomitant]
     Route: 065
  3. CARDURA XL [Concomitant]
     Active Substance: DOXAZOSIN MESYLATE
     Route: 065
  4. VEMURAFENIB. [Suspect]
     Active Substance: VEMURAFENIB
     Indication: MALIGNANT MELANOMA
     Dosage: DATE OF LAST DOSE PRIOR TO SAE: 13/JUN/2016?VEMURAFENIB 960 MG TABLETS (FOUR 240 MG TABLET) ORALLY B
     Route: 048
     Dates: start: 20160531
  5. NEBIVOLOL. [Concomitant]
     Active Substance: NEBIVOLOL
     Route: 065
  6. ATORIS [Concomitant]
     Active Substance: ATORVASTATIN CALCIUM
     Route: 065

REACTIONS (1)
  - Blood creatine phosphokinase increased [Recovered/Resolved]

NARRATIVE: CASE EVENT DATE: 20160613
